FAERS Safety Report 7130890-3 (Version None)
Quarter: 2010Q4

REPORT INFORMATION
  Report Type: 
  Country: None (occurrence: None)
  Receive Date: 20101101
  Receipt Date: 20100810
  Transmission Date: 20110411
  Serious: No
  Sender: FDA-Public Use
  Company Number: 2010-10845

PATIENT
  Age: 52 Year
  Sex: Male
  Weight: 77.1 kg

DRUGS (2)
  1. RAPAFLO [Suspect]
     Indication: BLADDER SPASM
     Dosage: 8 MG, DAILY, ORAL
     Route: 048
     Dates: start: 20100807
  2. RAPAFLO [Suspect]
     Indication: URETHRAL SPASM
     Dosage: 8 MG, DAILY, ORAL
     Route: 048
     Dates: start: 20100807

REACTIONS (1)
  - RETROGRADE EJACULATION [None]
